FAERS Safety Report 8326315-2 (Version None)
Quarter: 2012Q2

REPORT INFORMATION
  Report Type: 
  Country: None (occurrence: None)
  Receive Date: 20120501
  Receipt Date: 20120418
  Transmission Date: 20120825
  Serious: Yes (Hospitalization, Other)
  Sender: FDA-Public Use
  Company Number: IT-ELI_LILLY_AND_COMPANY-IT201203003942

PATIENT
  Sex: Male

DRUGS (6)
  1. DEXAMETHASONE [Concomitant]
     Indication: LUNG ADENOCARCINOMA
     Dosage: 20 MG, UNKNOWN
     Route: 042
     Dates: start: 20120105, end: 20120105
  2. ZOFRAN [Concomitant]
     Dosage: 8 MG, UNKNOWN
     Route: 042
     Dates: start: 20120105, end: 20120105
  3. CISPLATIN [Concomitant]
     Dosage: 95 MG, UNKNOWN
     Route: 042
     Dates: start: 20120105
  4. ALIMTA [Suspect]
     Indication: LUNG ADENOCARCINOMA
     Dosage: 634 MG, QD
     Route: 042
     Dates: start: 20120105
  5. CARBOPLATIN [Concomitant]
     Dosage: UNK
     Dates: start: 20120328
  6. HEPARIN [Concomitant]

REACTIONS (7)
  - GASTROENTERITIS VIRAL [None]
  - DIARRHOEA [None]
  - BRONCHOPNEUMONIA [None]
  - CHRONIC OBSTRUCTIVE PULMONARY DISEASE [None]
  - DEEP VEIN THROMBOSIS [None]
  - WEIGHT DECREASED [None]
  - EPIDIDYMITIS [None]
